FAERS Safety Report 25734995 (Version 1)
Quarter: 2025Q3

REPORT INFORMATION
  Report Type: Spontaneous
  Country: US (occurrence: None)
  Receive Date: 20250827
  Receipt Date: 20250827
  Transmission Date: 20251020
  Serious: Yes (Other)
  Sender: FDA-CTU
  Company Number: None

PATIENT
  Age: 46 Year
  Sex: Female

DRUGS (1)
  1. CIPROFLOXACIN [Suspect]
     Active Substance: CIPROFLOXACIN
     Indication: Endometritis
     Dates: start: 20250826, end: 20250826

REACTIONS (3)
  - Muscle spasms [None]
  - Paraesthesia [None]
  - Paraesthesia [None]

NARRATIVE: CASE EVENT DATE: 20250826
